FAERS Safety Report 23344565 (Version 1)
Quarter: 2023Q4

REPORT INFORMATION
  Report Type: Spontaneous
  Country: CN (occurrence: CN)
  Receive Date: 20231228
  Receipt Date: 20231228
  Transmission Date: 20240109
  Serious: Yes (Hospitalization)
  Sender: FDA-Public Use
  Company Number: CN-ELI_LILLY_AND_COMPANY-CN202312013918

PATIENT
  Age: 78 Year
  Sex: Female

DRUGS (2)
  1. INSULIN HUMAN [Suspect]
     Active Substance: INSULIN HUMAN
     Indication: Diabetes mellitus
     Dosage: 16 U, BID
     Route: 058
     Dates: start: 20231130, end: 20231216
  2. INSULIN HUMAN [Suspect]
     Active Substance: INSULIN HUMAN
     Indication: Hypoglycaemia

REACTIONS (6)
  - Type 2 diabetes mellitus [Unknown]
  - Hypertension [Unknown]
  - Cerebral infarction [Unknown]
  - Hypoglycaemic coma [Recovering/Resolving]
  - Troponin T increased [Unknown]
  - Brain natriuretic peptide increased [Unknown]

NARRATIVE: CASE EVENT DATE: 20231216
